FAERS Safety Report 4788960-0 (Version None)
Quarter: 2005Q4

REPORT INFORMATION
  Report Type: 
  Country: None (occurrence: None)
  Receive Date: 20051004
  Receipt Date: 20050921
  Transmission Date: 20060501
  Serious: Yes (Death, Other)
  Sender: FDA-Public Use
  Company Number: 2005076541

PATIENT
  Age: 86 Year
  Sex: Male
  Weight: 67.2684 kg

DRUGS (4)
  1. BENADRYL ALLERGY/SINUS (DIPHENYDRAMINE, PSEUDOEPHEDRINE) [Suspect]
     Indication: RHINORRHOEA
     Dosage: 1 TAB BID, ORAL
     Route: 048
     Dates: start: 20050401, end: 20050501
  2. DOCUSATE SODIUM (DOCUSATE SODIUM) [Concomitant]
  3. SENNA FRUIT (SENNA FRUIT) [Concomitant]
  4. ALLERGY MEDICATION (ALLERGY MEDICATION) [Concomitant]

REACTIONS (12)
  - ANXIETY [None]
  - BENIGN PROSTATIC HYPERPLASIA [None]
  - BLADDER TRABECULATION [None]
  - CARDIAC MURMUR [None]
  - CONSTIPATION [None]
  - CYSTITIS [None]
  - DEPRESSION [None]
  - OBSTRUCTIVE UROPATHY [None]
  - PAIN [None]
  - PULMONARY VALVE DISEASE [None]
  - URETHRAL STENOSIS [None]
  - URINARY RETENTION [None]
